FAERS Safety Report 8445984 (Version 2)
Quarter: 2013Q2

REPORT INFORMATION
  Report Type: Spontaneous
  Country: US (occurrence: US)
  Receive Date: 20120307
  Receipt Date: 20130619
  Transmission Date: 20140414
  Serious: No
  Sender: FDA-Public Use
  Company Number: US-ASTRAZENECA-2011SE61059

PATIENT
  Age: 49 Year
  Sex: Female

DRUGS (6)
  1. ZOMIG [Suspect]
     Indication: MIGRAINE
     Route: 045
  2. ZOMIG [Suspect]
     Indication: HEADACHE
     Route: 045
  3. ZOMIG [Suspect]
     Indication: MIGRAINE
     Route: 048
  4. ZOMIG [Suspect]
     Indication: HEADACHE
     Route: 048
  5. ZOMIG [Suspect]
     Indication: MIGRAINE
     Dosage: 5 MG, ONE AT ONSET, MAY REPEAT IN 24 HOURS, MAXIMUM 3 DOSES PER MONTH
     Route: 048
  6. ZOMIG [Suspect]
     Indication: HEADACHE
     Dosage: 5 MG, ONE AT ONSET, MAY REPEAT IN 24 HOURS, MAXIMUM 3 DOSES PER MONTH
     Route: 048

REACTIONS (9)
  - Sleep disorder due to general medical condition, insomnia type [Unknown]
  - Feeling abnormal [Unknown]
  - Migraine [Unknown]
  - Ear infection [Unknown]
  - Sinusitis [Unknown]
  - Drug intolerance [Unknown]
  - Vomiting [Unknown]
  - Headache [Unknown]
  - Drug dose omission [Unknown]
